FAERS Safety Report 7320318-2 (Version None)
Quarter: 2011Q1

REPORT INFORMATION
  Report Type: 
  Country: None (occurrence: None)
  Receive Date: 20110214
  Receipt Date: 20110203
  Transmission Date: 20110831
  Serious: Yes (Hospitalization)
  Sender: FDA-Public Use
  Company Number: DKLU1068203

PATIENT
  Age: 12 Month
  Sex: Male

DRUGS (7)
  1. SABRIL [Suspect]
     Indication: INFANTILE SPASMS
     Dosage: 125 MG MILLIGRAM(S), 2 IN 1 D, ORAL
     Route: 048
     Dates: start: 20101203
  2. TOPAMAX [Concomitant]
  3. KLONOPIN [Concomitant]
  4. PREVACID [Concomitant]
  5. PULMICORT [Concomitant]
  6. ALBUTEROL [Concomitant]
  7. KEPPRA [Concomitant]

REACTIONS (6)
  - VOMITING [None]
  - DIARRHOEA [None]
  - DIABETES INSIPIDUS [None]
  - BRAIN INJURY [None]
  - CEREBRAL HAEMATOMA [None]
  - CRYING [None]
